FAERS Safety Report 6525132-3 (Version None)
Quarter: 2010Q1

REPORT INFORMATION
  Report Type: 
  Country: None (occurrence: None)
  Receive Date: 20100104
  Receipt Date: 20091201
  Transmission Date: 20100710
  Serious: No
  Sender: FDA-Public Use
  Company Number: US-BAYER-200941810NA

PATIENT
  Age: 22 Year
  Sex: Female

DRUGS (2)
  1. YASMIN [Suspect]
     Indication: CONTRACEPTION
     Route: 048
     Dates: start: 20080101
  2. TYLENOL (CAPLET) [Concomitant]
     Dosage: RARELY TAKES

REACTIONS (4)
  - ABDOMINAL PAIN [None]
  - DRUG WITHDRAWAL HEADACHE [None]
  - NO ADVERSE EVENT [None]
  - VAGINAL HAEMORRHAGE [None]
